FAERS Safety Report 9422221 (Version 1)
Quarter: 2013Q3

REPORT INFORMATION
  Report Type: Spontaneous
  Country: ES (occurrence: ES)
  Receive Date: 20130726
  Receipt Date: 20130726
  Transmission Date: 20140515
  Serious: Yes (Hospitalization)
  Sender: FDA-Public Use
  Company Number: ES-PFIZER INC-2013215273

PATIENT
  Age: 87 Year
  Sex: Male

DRUGS (9)
  1. INSPRA [Suspect]
     Indication: MYOCARDIAL ISCHAEMIA
     Dosage: 25 MG, ONCE DAILY
     Route: 048
     Dates: start: 20120924, end: 20121031
  2. BISOPROLOL [Interacting]
     Indication: MYOCARDIAL ISCHAEMIA
     Dosage: 2.5 MG, TWICE DAILY
     Route: 048
     Dates: start: 20121023, end: 20121031
  3. RENITEC [Interacting]
     Indication: MYOCARDIAL ISCHAEMIA
     Dosage: 2.5 MG, TWICE DAILY
     Route: 048
     Dates: start: 20120820, end: 20121031
  4. METFORMIN [Concomitant]
     Indication: TYPE 2 DIABETES MELLITUS
     Dosage: 850 MG, 3X/DAY
     Route: 048
     Dates: start: 20121023
  5. MIRTAZAPINE [Concomitant]
     Indication: DEPRESSION
     Dosage: 15 MG, 1X/DAY
     Route: 048
     Dates: start: 20121004
  6. PANTOPRAZOLE [Concomitant]
     Indication: PROPHYLAXIS AGAINST GASTROINTESTINAL ULCER
     Dosage: 40 MG, ONCE DAILY
     Route: 048
  7. SEGURIL [Concomitant]
     Indication: HYPERTENSION
     Dosage: 30 MG, 2X/DAY
     Route: 048
     Dates: start: 20120924
  8. SINTROM [Concomitant]
     Indication: ATRIAL FIBRILLATION
     Dosage: 4 MG, UNK
     Route: 048
     Dates: start: 20100831
  9. ZARATOR [Concomitant]
     Indication: DYSLIPIDAEMIA
     Dosage: 20 MG, 1X/DAY
     Route: 048
     Dates: start: 20111104

REACTIONS (4)
  - Hyperkalaemia [Recovered/Resolved]
  - Electrocardiogram change [Recovered/Resolved]
  - Renal failure chronic [Recovered/Resolved]
  - Drug interaction [Recovered/Resolved]
